FAERS Safety Report 8833812 (Version 2)
Quarter: 2013Q1

REPORT INFORMATION
  Report Type: Spontaneous
  Country: US (occurrence: US)
  Receive Date: 20121011
  Receipt Date: 20130118
  Transmission Date: 20140127
  Serious: No
  Sender: FDA-Public Use
  Company Number: US-009507513-1210USA000306

PATIENT
  Sex: Male

DRUGS (5)
  1. NASONEX [Suspect]
     Indication: HYPERSENSITIVITY
     Dosage: 1 SPRAY IN EACH NOSTRIL TWICW A DAY
     Route: 055
     Dates: start: 2009
  2. ATENOLOL [Concomitant]
  3. LIPTOR [Concomitant]
  4. LASIX (FUROSEMIDE SODIUM) [Concomitant]
  5. VICODIN [Concomitant]

REACTIONS (2)
  - Dyspnoea [Unknown]
  - Drug ineffective [Unknown]
